FAERS Safety Report 19137386 (Version 3)
Quarter: 2021Q3

REPORT INFORMATION
  Report Type: Spontaneous
  Country: US (occurrence: US)
  Receive Date: 20210414
  Receipt Date: 20210816
  Transmission Date: 20211014
  Serious: Yes (Hospitalization, Other)
  Sender: FDA-Public Use
  Company Number: US-GILEAD-2021-0524836

PATIENT
  Age: 56 Year
  Sex: Male
  Weight: 105.67 kg

DRUGS (16)
  1. ALPRAZOLAM. [Concomitant]
     Active Substance: ALPRAZOLAM
  2. GABAPENTIN. [Concomitant]
     Active Substance: GABAPENTIN
  3. KALETRA [Concomitant]
     Active Substance: LOPINAVIR\RITONAVIR
  4. LEXIVA [Concomitant]
     Active Substance: FOSAMPRENAVIR CALCIUM
  5. TROGARZO [Concomitant]
     Active Substance: IBALIZUMAB-UIYK
  6. TRUVADA [Suspect]
     Active Substance: EMTRICITABINE\TENOFOVIR DISOPROXIL FUMARATE
     Dosage: UNK
     Route: 065
     Dates: start: 200609, end: 20180208
  7. RETROVIR [Concomitant]
     Active Substance: ZIDOVUDINE
  8. TRUVADA [Suspect]
     Active Substance: EMTRICITABINE\TENOFOVIR DISOPROXIL FUMARATE
     Indication: HIV INFECTION
     Dosage: UNK
     Route: 048
     Dates: start: 2004
  9. STRIBILD [Suspect]
     Active Substance: COBICISTAT\ELVITEGRAVIR\EMTRICITABINE\TENOFOVIR DISOPROXIL FUMARATE
     Indication: HIV INFECTION
     Dosage: UNK
     Route: 065
     Dates: start: 20121015, end: 20170202
  10. PREZISTA [Concomitant]
     Active Substance: DARUNAVIR ETHANOLATE
  11. DESCOVY [Concomitant]
     Active Substance: EMTRICITABINE\TENOFOVIR ALAFENAMIDE FUMARATE
  12. INTELENCE [Concomitant]
     Active Substance: ETRAVIRINE
  13. TIVICAY [Concomitant]
     Active Substance: DOLUTEGRAVIR SODIUM
  14. FUZEON [Concomitant]
     Active Substance: ENFUVIRTIDE
  15. NORVIR [Concomitant]
     Active Substance: RITONAVIR
  16. SELZENTRY [Concomitant]
     Active Substance: MARAVIROC

REACTIONS (21)
  - Road traffic accident [Unknown]
  - Meniscus injury [Unknown]
  - Lower limb fracture [Unknown]
  - Upper limb fracture [Recovered/Resolved]
  - Osteoporosis [Not Recovered/Not Resolved]
  - Therapeutic product effect decreased [Unknown]
  - Eye infection [Unknown]
  - Neck pain [Unknown]
  - Visual impairment [Unknown]
  - Tibia fracture [Recovered/Resolved]
  - Gait disturbance [Unknown]
  - Wrist fracture [Recovered/Resolved]
  - Emotional distress [Not Recovered/Not Resolved]
  - Back pain [Unknown]
  - Anxiety [Not Recovered/Not Resolved]
  - Fall [Unknown]
  - Hand fracture [Recovered/Resolved]
  - Anhedonia [Not Recovered/Not Resolved]
  - Pain [Not Recovered/Not Resolved]
  - Limb injury [Unknown]
  - Bone density decreased [Unknown]

NARRATIVE: CASE EVENT DATE: 201412
